FAERS Safety Report 23950005 (Version 1)
Quarter: 2024Q2

REPORT INFORMATION
  Report Type: Spontaneous
  Country: IT (occurrence: IT)
  Receive Date: 20240607
  Receipt Date: 20240607
  Transmission Date: 20240716
  Serious: Yes (Hospitalization, Other)
  Sender: FDA-Public Use
  Company Number: None

PATIENT
  Age: 70 Year
  Sex: Male

DRUGS (5)
  1. OXALIPLATIN [Suspect]
     Active Substance: OXALIPLATIN
     Indication: Adenocarcinoma of colon
     Dosage: 100 MG/ 20 ML DRUG_TREATMENT_DURATION : 120 DRUG_TREATMENT_DURATION_UNIT : MIN
     Route: 042
     Dates: start: 20240424, end: 20240424
  2. OXALIPLATIN [Suspect]
     Active Substance: OXALIPLATIN
     Dosage: 50 MG/10 ML DRUG_TREATMENT_DURATION : 120 DRUG_TREATMENT_DURATION_UNIT : MIN
     Route: 042
     Dates: start: 20240424, end: 20240424
  3. ONDANSETRON [Concomitant]
     Active Substance: ONDANSETRON
     Dosage: 8 MG IN 100 ML OF SALINE SOLUTION DRUG_TREATMENT_DURATION : 15 DRUG_TREATMENT_DURATION_UNIT : MIN
     Route: 042
     Dates: start: 20240424, end: 20240424
  4. CAPECITABINE [Concomitant]
     Active Substance: CAPECITABINE
     Indication: Adenocarcinoma of colon
     Dosage: 4 X 500 MG TABLETS AFTER BREAKFAST AND 3 X 500 MG TABLETS AFTER DINNER
     Route: 048
     Dates: start: 20240425, end: 20240508
  5. DEXAMETHASONE [Concomitant]
     Active Substance: DEXAMETHASONE
     Dosage: 16 MG IN 100 ML OF SALINE SOLUTION DRUG_TREATMENT_DURATION : 15 DRUG_TREATMENT_DURATION_UNIT : MIN
     Route: 042
     Dates: start: 20240424, end: 20240424

REACTIONS (2)
  - Megacolon [Not Recovered/Not Resolved]
  - Febrile neutropenia [Not Recovered/Not Resolved]
